FAERS Safety Report 6603596-4 (Version None)
Quarter: 2010Q1

REPORT INFORMATION
  Report Type: 
  Country: None (occurrence: None)
  Receive Date: 20100226
  Receipt Date: 20091222
  Transmission Date: 20100710
  Serious: No
  Sender: FDA-Public Use
  Company Number: A0816284A

PATIENT
  Age: 49 Year
  Sex: Female

DRUGS (5)
  1. VALTREX [Suspect]
     Indication: GENITAL HERPES
     Dosage: 500MG PER DAY
     Route: 048
     Dates: start: 20060101, end: 20091109
  2. DIOVAN [Concomitant]
     Indication: HYPERTENSION
     Dosage: 160MG PER DAY
     Dates: start: 20040101
  3. MULTI-VITAMIN [Concomitant]
  4. OMEGA 3 FATTY ACIDS [Concomitant]
  5. ESTER C [Concomitant]

REACTIONS (1)
  - WHITE BLOOD CELL COUNT DECREASED [None]
